FAERS Safety Report 9628643 (Version 3)
Quarter: 2015Q3

REPORT INFORMATION
  Report Type: Spontaneous
  Country: US (occurrence: US)
  Receive Date: 20131017
  Receipt Date: 20150818
  Transmission Date: 20151125
  Serious: No
  Sender: FDA-Public Use
  Company Number: US-PFIZER INC-2013295331

PATIENT
  Age: 54 Year
  Sex: Female
  Weight: 57 kg

DRUGS (9)
  1. PANTOPRAZOLE [Concomitant]
     Active Substance: PANTOPRAZOLE SODIUM
     Indication: HIATUS HERNIA
  2. INSULIN PORCINE [Concomitant]
     Active Substance: INSULIN DEFALAN (PORCINE)
     Indication: HYPOTHYROIDISM
     Dosage: 45 MG, 1X/DAY
     Route: 048
  3. CELEBREX [Suspect]
     Active Substance: CELECOXIB
     Indication: NERVE INJURY
     Dosage: 200 MG, 1X/DAY WITH BREAKFAST)
     Route: 048
     Dates: start: 201305
  4. ALPRAZOLAM. [Concomitant]
     Active Substance: ALPRAZOLAM
     Dosage: 2 MG, 3X/DAY (IN THE MORNING, AT NOON, AND IN THE AFTERNOON)
  5. PROGESTERONE. [Concomitant]
     Active Substance: PROGESTERONE
     Dosage: UNK
  6. TRAMADOL. [Concomitant]
     Active Substance: TRAMADOL
     Dosage: UNK
  7. CELEBREX [Suspect]
     Active Substance: CELECOXIB
     Indication: ARTHRITIS
  8. PANTOPRAZOLE [Concomitant]
     Active Substance: PANTOPRAZOLE SODIUM
     Indication: GASTROOESOPHAGEAL REFLUX DISEASE
     Dosage: 40 MG, 1X/DAY (BEFORE BREAKFAST)
  9. DULOXETINE DRLA [Concomitant]
     Indication: FIBROMYALGIA
     Dosage: 30 MG, 1X/DAY
     Route: 048

REACTIONS (6)
  - Product use issue [Unknown]
  - Vitamin B12 increased [Unknown]
  - Abdominal pain upper [Recovered/Resolved]
  - Oral discomfort [Unknown]
  - Nausea [Recovered/Resolved]
  - Glossodynia [Unknown]

NARRATIVE: CASE EVENT DATE: 201305
